FAERS Safety Report 5341321-8 (Version None)
Quarter: 2007Q2

REPORT INFORMATION
  Report Type: 
  Country: None (occurrence: None)
  Receive Date: 20070521
  Receipt Date: 20070511
  Transmission Date: 20071010
  Serious: Yes (Other)
  Sender: FDA-Public Use
  Company Number: AECAN200700050

PATIENT
  Age: 59 Year
  Sex: Male
  Weight: 76 kg

DRUGS (2)
  1. IMMUNE GLOBULIN (HUMAN) [Suspect]
     Indication: POLYMYOSITIS
     Dosage: 40 GM;1X;IV
     Route: 042
     Dates: start: 20061211, end: 20061211
  2. GAMUNEX [Suspect]
     Indication: POLYMYOSITIS
     Dosage: 10 GM;1X;IV
     Route: 042
     Dates: start: 20061211, end: 20061211

REACTIONS (4)
  - OEDEMA PERIPHERAL [None]
  - PAIN IN EXTREMITY [None]
  - POST PROCEDURAL COMPLICATION [None]
  - THROMBOPHLEBITIS [None]
